FAERS Safety Report 11215797 (Version 1)
Quarter: 2015Q2

REPORT INFORMATION
  Report Type: Spontaneous
  Country: CH (occurrence: CH)
  Receive Date: 20150624
  Receipt Date: 20150624
  Transmission Date: 20150821
  Serious: Yes (Hospitalization)
  Sender: FDA-Public Use
  Company Number: CH-BAYER-2015-360629

PATIENT
  Age: 69 Year
  Sex: Male
  Weight: 79 kg

DRUGS (3)
  1. SINTROM [Interacting]
     Active Substance: ACENOCOUMAROL
     Indication: ENDARTERECTOMY
     Dosage: 2 MG, QD
     Route: 048
     Dates: start: 20140630, end: 20150423
  2. MALTOFER [Concomitant]
     Active Substance: IRON POLYMALTOSE
     Dosage: 100 MG, BID
     Route: 048
     Dates: end: 20150423
  3. ASPIRIN CARDIO [Suspect]
     Active Substance: ASPIRIN
     Indication: PERIPHERAL ARTERIAL OCCLUSIVE DISEASE
     Dosage: 100 MG, QD
     Route: 048

REACTIONS (5)
  - Dizziness postural [Recovered/Resolved]
  - Gastritis [Unknown]
  - Gastrointestinal haemorrhage [Recovered/Resolved]
  - Haemorrhagic anaemia [Recovering/Resolving]
  - Anticoagulation drug level above therapeutic [Recovered/Resolved]

NARRATIVE: CASE EVENT DATE: 2015
